FAERS Safety Report 4701404-X (Version None)
Quarter: 2005Q2

REPORT INFORMATION
  Report Type: 
  Country: None (occurrence: None)
  Receive Date: 20050628
  Receipt Date: 20041104
  Transmission Date: 20051028
  Serious: Yes (Disabling)
  Sender: FDA-Public Use
  Company Number: US-ROCHE-385761

PATIENT
  Age: 23 Year
  Sex: Male
  Weight: 78 kg

DRUGS (1)
  1. ACCUTANE [Suspect]
     Route: 048
     Dates: start: 20000615, end: 20010615

REACTIONS (15)
  - ARTHRALGIA [None]
  - COLITIS [None]
  - COLITIS ULCERATIVE [None]
  - COLON INJURY [None]
  - CROHN'S DISEASE [None]
  - GASTRIC HAEMORRHAGE [None]
  - GASTROINTESTINAL DISORDER [None]
  - GASTROOESOPHAGEAL REFLUX DISEASE [None]
  - INFLAMMATORY BOWEL DISEASE [None]
  - INTESTINAL HAEMORRHAGE [None]
  - IRRITABLE BOWEL SYNDROME [None]
  - OEDEMA PERIPHERAL [None]
  - RECTAL HAEMORRHAGE [None]
  - TESTICULAR PAIN [None]
  - VISUAL DISTURBANCE [None]
